FAERS Safety Report 19711765 (Version 1)
Quarter: 2021Q3

REPORT INFORMATION
  Report Type: Spontaneous
  Country: CA (occurrence: CA)
  Receive Date: 20210816
  Receipt Date: 20210816
  Transmission Date: 20211014
  Serious: Yes (Other)
  Sender: FDA-Public Use
  Company Number: CA-PURDUE-USA-2020-0200659

PATIENT
  Age: 52 Year
  Sex: Female

DRUGS (2)
  1. OXYCONTIN [Suspect]
     Active Substance: OXYCODONE HYDROCHLORIDE
     Indication: PAIN MANAGEMENT
     Dosage: 20 MG, UNK
     Route: 048
  2. OXYCONTIN [Suspect]
     Active Substance: OXYCODONE HYDROCHLORIDE
     Dosage: 80 MG, UNK
     Route: 048

REACTIONS (17)
  - Anxiety [Unknown]
  - Emotional distress [Unknown]
  - Personality disorder [Unknown]
  - General physical condition abnormal [Unknown]
  - Mental disorder [Unknown]
  - Weight increased [Unknown]
  - Bruxism [Unknown]
  - Depression [Unknown]
  - Sciatic nerve injury [Unknown]
  - Loss of consciousness [Unknown]
  - Amnesia [Unknown]
  - Overdose [Unknown]
  - Apathy [Unknown]
  - Abulia [Unknown]
  - Psychiatric symptom [Unknown]
  - Drug dependence [Unknown]
  - Paraesthesia [Unknown]
